FAERS Safety Report 25087460 (Version 1)
Quarter: 2025Q1

REPORT INFORMATION
  Report Type: Spontaneous
  Country: US (occurrence: US)
  Receive Date: 20250318
  Receipt Date: 20250318
  Transmission Date: 20250408
  Serious: No
  Sender: APOTEX
  Company Number: US-APOTEX-2025AP002951

PATIENT
  Age: 57 Year
  Sex: Female

DRUGS (5)
  1. PONATINIB [Suspect]
     Active Substance: PONATINIB
     Indication: Philadelphia chromosome positive
     Dosage: 30 MILLIGRAM, QD
     Route: 065
  2. PONATINIB [Suspect]
     Active Substance: PONATINIB
     Indication: Acute lymphocytic leukaemia
     Dosage: 15 MILLIGRAM, QD
     Route: 065
  3. PONATINIB [Suspect]
     Active Substance: PONATINIB
     Dosage: 15 MILLIGRAM, Q.O.D.
     Route: 065
  4. CYCLOPHOSPHAMIDE;CYTARABINE;DEXAMETHASONE;DOXORUBICIN;METHOTREXATE;VIN [Concomitant]
     Indication: Philadelphia chromosome positive
     Route: 065
  5. CYCLOPHOSPHAMIDE;CYTARABINE;DEXAMETHASONE;DOXORUBICIN;METHOTREXATE;VIN [Concomitant]
     Indication: Acute lymphocytic leukaemia

REACTIONS (2)
  - Chest pain [Unknown]
  - Hepatic function abnormal [Unknown]
